FAERS Safety Report 4873448-9 (Version None)
Quarter: 2005Q4

REPORT INFORMATION
  Report Type: 
  Country: None (occurrence: None)
  Receive Date: 20051201
  Receipt Date: 20050821
  Transmission Date: 20060501
  Serious: No
  Sender: FDA-Public Use
  Company Number: 2005PV001351

PATIENT
  Age: 59 Year
  Sex: Male

DRUGS (14)
  1. BYETTA [Suspect]
     Indication: DIABETES MELLITUS NON-INSULIN-DEPENDENT
     Dosage: SEE IMAGE
     Route: 058
     Dates: start: 20050720, end: 20050818
  2. BYETTA [Suspect]
     Indication: DIABETES MELLITUS NON-INSULIN-DEPENDENT
     Dosage: SEE IMAGE
     Route: 058
     Dates: start: 20050819
  3. FOLIC ACID [Concomitant]
  4. LISINOPRIL [Concomitant]
  5. K-DUR 10 [Concomitant]
  6. DIGOXIN [Concomitant]
  7. ZYRTEC [Concomitant]
  8. LASIX [Concomitant]
  9. ALEVE [Concomitant]
  10. SEREVENT [Concomitant]
  11. COMBIVENT [Concomitant]
  12. FLONASE [Concomitant]
  13. LANTUS [Concomitant]
  14. OXYGEN [Concomitant]

REACTIONS (5)
  - BLOOD GLUCOSE INCREASED [None]
  - DRY SKIN [None]
  - FLANK PAIN [None]
  - LIP DRY [None]
  - PAINFUL RESPIRATION [None]
